FAERS Safety Report 13634344 (Version 1)
Quarter: 2017Q2

REPORT INFORMATION
  Report Type: Spontaneous
  Country: US (occurrence: US)
  Receive Date: 20170531
  Receipt Date: 20170531
  Transmission Date: 20170830
  Serious: No
  Sender: FDA-Public Use
  Company Number: US-ASTELLAS-1622073

PATIENT
  Age: 81 Year
  Sex: Female

DRUGS (7)
  1. TARCEVA [Suspect]
     Active Substance: ERLOTINIB HYDROCHLORIDE
     Indication: LUNG NEOPLASM MALIGNANT
     Route: 065
     Dates: start: 20110604, end: 20150801
  2. MORPHINE SULFATE. [Concomitant]
     Active Substance: MORPHINE SULFATE
     Dosage: 10MG/5ML
     Route: 065
  3. ZETIA [Concomitant]
     Active Substance: EZETIMIBE
  4. AMMONIUM LACTATE. [Concomitant]
     Active Substance: AMMONIUM LACTATE
  5. FUROSEMIDE. [Concomitant]
     Active Substance: FUROSEMIDE
  6. CEPHALEXIN. [Concomitant]
     Active Substance: CEPHALEXIN
  7. VERAMYST [Concomitant]
     Active Substance: FLUTICASONE FUROATE

REACTIONS (4)
  - Diarrhoea [Unknown]
  - Vomiting [Unknown]
  - Feeling abnormal [Unknown]
  - Decreased appetite [Unknown]

NARRATIVE: CASE EVENT DATE: 20150715
